FAERS Safety Report 26015070 (Version 1)
Quarter: 2025Q4

REPORT INFORMATION
  Report Type: Spontaneous
  Country: US (occurrence: US)
  Receive Date: 20251109
  Receipt Date: 20251109
  Transmission Date: 20260117
  Serious: No
  Sender: ELI LILLY AND COMPANY
  Company Number: US-ELI_LILLY_AND_COMPANY-US202510026398

PATIENT
  Age: 70 Year

DRUGS (32)
  1. ZEPBOUND [Suspect]
     Active Substance: TIRZEPATIDE
     Indication: Weight control
     Dosage: 2.5 MG, UNKNOWN
     Route: 058
  2. ZEPBOUND [Suspect]
     Active Substance: TIRZEPATIDE
     Indication: Weight control
     Dosage: 2.5 MG, UNKNOWN
     Route: 058
  3. ZEPBOUND [Suspect]
     Active Substance: TIRZEPATIDE
     Indication: Weight control
     Dosage: 2.5 MG, UNKNOWN
     Route: 058
  4. ZEPBOUND [Suspect]
     Active Substance: TIRZEPATIDE
     Indication: Weight control
     Dosage: 2.5 MG, UNKNOWN
     Route: 058
  5. ZEPBOUND [Suspect]
     Active Substance: TIRZEPATIDE
     Indication: Gastrooesophageal reflux disease
     Dosage: 2.5 MG, UNKNOWN
     Route: 058
  6. ZEPBOUND [Suspect]
     Active Substance: TIRZEPATIDE
     Indication: Gastrooesophageal reflux disease
     Dosage: 2.5 MG, UNKNOWN
     Route: 058
  7. ZEPBOUND [Suspect]
     Active Substance: TIRZEPATIDE
     Indication: Gastrooesophageal reflux disease
     Dosage: 2.5 MG, UNKNOWN
     Route: 058
  8. ZEPBOUND [Suspect]
     Active Substance: TIRZEPATIDE
     Indication: Gastrooesophageal reflux disease
     Dosage: 2.5 MG, UNKNOWN
     Route: 058
  9. ZEPBOUND [Suspect]
     Active Substance: TIRZEPATIDE
     Indication: Arthritis
  10. ZEPBOUND [Suspect]
     Active Substance: TIRZEPATIDE
     Indication: Arthritis
  11. ZEPBOUND [Suspect]
     Active Substance: TIRZEPATIDE
     Indication: Arthritis
  12. ZEPBOUND [Suspect]
     Active Substance: TIRZEPATIDE
     Indication: Arthritis
  13. ZEPBOUND [Suspect]
     Active Substance: TIRZEPATIDE
     Indication: Asthma
  14. ZEPBOUND [Suspect]
     Active Substance: TIRZEPATIDE
     Indication: Asthma
  15. ZEPBOUND [Suspect]
     Active Substance: TIRZEPATIDE
     Indication: Asthma
  16. ZEPBOUND [Suspect]
     Active Substance: TIRZEPATIDE
     Indication: Asthma
  17. ZEPBOUND [Suspect]
     Active Substance: TIRZEPATIDE
     Indication: Weight control
     Dosage: 5 MG, UNKNOWN
     Route: 065
  18. ZEPBOUND [Suspect]
     Active Substance: TIRZEPATIDE
     Indication: Weight control
     Dosage: 5 MG, UNKNOWN
     Route: 065
  19. ZEPBOUND [Suspect]
     Active Substance: TIRZEPATIDE
     Indication: Weight control
     Dosage: 5 MG, UNKNOWN
     Route: 065
  20. ZEPBOUND [Suspect]
     Active Substance: TIRZEPATIDE
     Indication: Weight control
     Dosage: 5 MG, UNKNOWN
     Route: 065
  21. ZEPBOUND [Suspect]
     Active Substance: TIRZEPATIDE
     Indication: Gastrooesophageal reflux disease
  22. ZEPBOUND [Suspect]
     Active Substance: TIRZEPATIDE
     Indication: Gastrooesophageal reflux disease
  23. ZEPBOUND [Suspect]
     Active Substance: TIRZEPATIDE
     Indication: Gastrooesophageal reflux disease
  24. ZEPBOUND [Suspect]
     Active Substance: TIRZEPATIDE
     Indication: Gastrooesophageal reflux disease
  25. ZEPBOUND [Suspect]
     Active Substance: TIRZEPATIDE
     Indication: Arthritis
  26. ZEPBOUND [Suspect]
     Active Substance: TIRZEPATIDE
     Indication: Arthritis
  27. ZEPBOUND [Suspect]
     Active Substance: TIRZEPATIDE
     Indication: Arthritis
  28. ZEPBOUND [Suspect]
     Active Substance: TIRZEPATIDE
     Indication: Arthritis
  29. ZEPBOUND [Suspect]
     Active Substance: TIRZEPATIDE
     Indication: Asthma
  30. ZEPBOUND [Suspect]
     Active Substance: TIRZEPATIDE
     Indication: Asthma
  31. ZEPBOUND [Suspect]
     Active Substance: TIRZEPATIDE
     Indication: Asthma
  32. ZEPBOUND [Suspect]
     Active Substance: TIRZEPATIDE
     Indication: Asthma

REACTIONS (4)
  - Increased appetite [Unknown]
  - Off label use [Unknown]
  - Constipation [Unknown]
  - Gastrooesophageal reflux disease [Recovering/Resolving]
